FAERS Safety Report 17687275 (Version 3)
Quarter: 2020Q2

REPORT INFORMATION
  Report Type: Spontaneous
  Country: US (occurrence: US)
  Receive Date: 20200421
  Receipt Date: 20200602
  Transmission Date: 20200714
  Serious: No
  Sender: FDA-Public Use
  Company Number: US-GW PHARMA-202004USGW01446

PATIENT

DRUGS (1)
  1. EPIDIOLEX [Suspect]
     Active Substance: CANNABIDIOL
     Indication: LENNOX-GASTAUT SYNDROME
     Dosage: 150 MILLIGRAM, BID
     Route: 048
     Dates: start: 20181101

REACTIONS (5)
  - Alopecia [Not Recovered/Not Resolved]
  - Malabsorption [Unknown]
  - Serum ferritin decreased [Recovered/Resolved]
  - Pica [Not Recovered/Not Resolved]
  - Hypophagia [Not Recovered/Not Resolved]

NARRATIVE: CASE EVENT DATE: 20191126
